FAERS Safety Report 8775397 (Version 2)
Quarter: 2013Q1

REPORT INFORMATION
  Report Type: Report from Study
  Country: DE (occurrence: DE)
  Receive Date: 20120910
  Receipt Date: 20130327
  Transmission Date: 20140127
  Serious: Yes (Other)
  Sender: FDA-Public Use
  Company Number: DE-B.I. PHARMACEUTICALS,INC./RIDGEFIELD-2012-DE-02061DE

PATIENT
  Age: 50 Year
  Sex: Male
  Weight: 60 kg

DRUGS (6)
  1. VIRAMUNE [Suspect]
     Dosage: 20 ANZ
     Route: 048
     Dates: start: 20120830
  2. TRUVADA [Suspect]
     Dosage: 10 ANZ
     Route: 048
     Dates: start: 20120830
  3. GABAPENTIN [Suspect]
     Dosage: 40 ANZ
     Route: 048
     Dates: start: 20120830
  4. METAMIZOL [Suspect]
     Dosage: 10 ANZ
     Route: 048
     Dates: start: 20120830
  5. PANTOZOL [Suspect]
     Dosage: 20 ANZ
     Route: 048
     Dates: start: 20120830
  6. L-POLAMIDON [Suspect]
     Dosage: 7.5 MG
     Route: 048
     Dates: start: 20120830

REACTIONS (3)
  - Suicide attempt [Recovered/Resolved]
  - Somnolence [Recovered/Resolved]
  - Speech disorder [Recovered/Resolved]
